FAERS Safety Report 9247517 (Version 2)
Quarter: 2013Q4

REPORT INFORMATION
  Report Type: Spontaneous
  Country: BR (occurrence: BR)
  Receive Date: 20130423
  Receipt Date: 20131111
  Transmission Date: 20140711
  Serious: Yes (Hospitalization, Other)
  Sender: FDA-Public Use
  Company Number: PHHY2013BR038743

PATIENT
  Age: 73 Year
  Sex: Male
  Weight: 70 kg

DRUGS (6)
  1. TEGRETOL [Suspect]
     Indication: EPILEPSY
     Dosage: 1 DF, BID (400 MG)
     Dates: end: 201302
  2. TEGRETOL [Suspect]
     Dosage: 2 DF, BID (400 MG)
     Dates: end: 201302
  3. TEGRETOL [Suspect]
     Dosage: 2 DF, BID (200 MG)
     Dates: start: 201302, end: 201303
  4. TEGRETOL [Suspect]
     Dosage: 2 DF, UNK (1 DF OF 400 MG AT NIGHT) AND (1DF OF 200 MG IN THE MORNING)
  5. ATACAND HCT [Suspect]
     Indication: HYPERTENSION
     Dosage: UNK UKN, DAILY
     Dates: start: 2011
  6. DEPAKOTE [Suspect]

REACTIONS (7)
  - Pneumonia aspiration [Recovered/Resolved]
  - Swelling [Recovered/Resolved]
  - Hyperglycaemia [Recovered/Resolved]
  - Blood pressure increased [Recovered/Resolved]
  - Urinary tract infection [Recovered/Resolved]
  - Convulsion [Recovered/Resolved]
  - Vomiting [Recovered/Resolved]
